FAERS Safety Report 8979238 (Version 1)
Quarter: 2012Q4

REPORT INFORMATION
  Report Type: 
  Country: DK (occurrence: DK)
  Receive Date: 20121221
  Receipt Date: 20121221
  Transmission Date: 20130627
  Serious: Yes (Other)
  Sender: FDA-Public Use
  Company Number: DK-GLAXOSMITHKLINE-B0854469A

PATIENT
  Age: 53 Year
  Sex: Male

DRUGS (8)
  1. GABAPENTIN [Suspect]
     Indication: EPILEPSY
     Route: 065
  2. TRILEPTAL [Suspect]
     Indication: EPILEPSY
     Route: 065
  3. SODIUM VALPROATE [Suspect]
     Indication: EPILEPSY
     Dosage: 1500MG Per day
     Route: 065
  4. LAMICTAL [Suspect]
     Indication: EPILEPSY
     Route: 065
     Dates: start: 20060829
  5. DELEPSINE [Suspect]
     Indication: EPILEPSY
     Route: 065
     Dates: start: 200302
  6. SIMVASTATIN [Concomitant]
  7. ATACAND [Concomitant]
  8. HJERTEMAGNYL [Concomitant]
     Dosage: 75MG Per day

REACTIONS (3)
  - Petit mal epilepsy [Not Recovered/Not Resolved]
  - Memory impairment [Not Recovered/Not Resolved]
  - Erectile dysfunction [Not Recovered/Not Resolved]
